FAERS Safety Report 8288913-4 (Version None)
Quarter: 2012Q2

REPORT INFORMATION
  Report Type: 
  Country: None (occurrence: None)
  Receive Date: 20120417
  Receipt Date: 20120410
  Transmission Date: 20120825
  Serious: Yes (Other)
  Sender: FDA-Public Use
  Company Number: US-AMGEN-USASP2012022538

PATIENT
  Sex: Female

DRUGS (13)
  1. HUMALOG [Concomitant]
     Dosage: UNK
  2. ERGOCALCIFEROL [Concomitant]
     Dosage: UNK
  3. FOLIC ACID [Concomitant]
     Dosage: 1 UNK, QD
  4. NEXIUM [Concomitant]
     Dosage: 1 UNK, QD
  5. LANTUS [Concomitant]
     Dosage: UNK
  6. LACTULOSE [Concomitant]
     Dosage: UNK
  7. EPOGEN [Suspect]
     Indication: NEPHROGENIC ANAEMIA
     Route: 058
  8. PHOSLO [Concomitant]
     Dosage: UNK
  9. BACTROBAN [Concomitant]
     Dosage: UNK
  10. NIFEREX FORTE [Concomitant]
     Dosage: 1 UNK, QD
  11. SODIUM BICARBONATE [Concomitant]
     Dosage: UNK
  12. COLACE [Concomitant]
     Dosage: 1 UNK, QD
  13. NEPHROCAPS                         /01801401/ [Concomitant]
     Dosage: 1 UNK, QD

REACTIONS (2)
  - DRUG EFFECT DECREASED [None]
  - HAEMOGLOBIN DECREASED [None]
